FAERS Safety Report 8400640-9 (Version None)
Quarter: 2012Q2

REPORT INFORMATION
  Report Type: 
  Country: None (occurrence: None)
  Receive Date: 20120531
  Receipt Date: 20120528
  Transmission Date: 20120825
  Serious: Yes (Death, Other)
  Sender: FDA-Public Use
  Company Number: FR-ROCHE-1020821

PATIENT

DRUGS (7)
  1. CYTARABINE [Suspect]
     Indication: B-CELL LYMPHOMA
  2. CISPLATIN [Suspect]
     Indication: B-CELL LYMPHOMA
  3. MABTHERA [Suspect]
     Indication: B-CELL LYMPHOMA
  4. FLUDARABINE PHOSPHATE [Suspect]
     Indication: B-CELL LYMPHOMA
  5. OXALIPLATIN [Suspect]
     Indication: B-CELL LYMPHOMA
  6. DEXAMETHASONE [Suspect]
     Indication: B-CELL LYMPHOMA
  7. CYCLOPHOSPHAMIDE [Suspect]
     Indication: B-CELL LYMPHOMA

REACTIONS (6)
  - PANCYTOPENIA [None]
  - RICHTER'S SYNDROME [None]
  - HODGKIN'S DISEASE [None]
  - NEUTROPENIA [None]
  - SARCOMA UTERUS [None]
  - LUNG NEOPLASM MALIGNANT [None]
